FAERS Safety Report 6901494-X (Version None)
Quarter: 2010Q3

REPORT INFORMATION
  Report Type: 
  Country: None (occurrence: None)
  Receive Date: 20100803
  Receipt Date: 20080225
  Transmission Date: 20110219
  Serious: No
  Sender: FDA-Public Use
  Company Number: US-PFIZER INC-2008013325

PATIENT
  Sex: Male
  Weight: 108.9 kg

DRUGS (6)
  1. LYRICA [Suspect]
     Indication: HERPES ZOSTER
     Route: 048
     Dates: start: 20070601
  2. TAMSULOSIN HYDROCHLORIDE [Concomitant]
     Route: 048
  3. PRANDIN [Concomitant]
     Route: 048
  4. ADVICOR [Concomitant]
     Route: 048
  5. METOPROLOL [Concomitant]
     Route: 048
  6. ENALAPRIL [Concomitant]
     Route: 048

REACTIONS (1)
  - DRUG INEFFECTIVE [None]
